FAERS Safety Report 4334849-0 (Version None)
Quarter: 2004Q2

REPORT INFORMATION
  Report Type: 
  Country: None (occurrence: None)
  Receive Date: 20040405
  Receipt Date: 20040329
  Transmission Date: 20050107
  Serious: Yes (Other)
  Sender: FDA-Public Use
  Company Number: 200410100BNE

PATIENT
  Sex: Female

DRUGS (10)
  1. AVELOX [Suspect]
     Indication: PNEUMONIA
     Dosage: 400 MG, TOTAL DAILY, ORAL
     Route: 048
  2. WARFARIN SODIUM [Concomitant]
  3. DIGOXIN [Concomitant]
  4. VERAPAMIL [Concomitant]
  5. ATORVASTATIN [Concomitant]
  6. CO-PROXAMOL [Concomitant]
  7. FUROSEMIDE [Concomitant]
  8. VALSARTAN [Concomitant]
  9. THYROXIN [Concomitant]
  10. BRICANYL [Concomitant]

REACTIONS (2)
  - CIRCULATORY COLLAPSE [None]
  - LOSS OF CONSCIOUSNESS [None]
